FAERS Safety Report 9892890 (Version 1)
Quarter: 2014Q1

REPORT INFORMATION
  Report Type: Report from Study
  Country: JP (occurrence: JP)
  Receive Date: 20140213
  Receipt Date: 20140213
  Transmission Date: 20141002
  Serious: Yes (Other)
  Sender: FDA-Public Use
  Company Number: JP-009507513-1402JPN004521

PATIENT
  Age: 79 Year
  Sex: Male
  Weight: 45 kg

DRUGS (7)
  1. TEMOZOLOMIDE [Suspect]
     Indication: ANAPLASTIC ASTROCYTOMA
     Dosage: 75 MG/M2, QD
     Route: 041
     Dates: start: 20101129, end: 20101220
  2. WARFARIN [Concomitant]
     Dosage: UNK
     Route: 048
     Dates: start: 20101109, end: 20110110
  3. PREDNISOLONE [Concomitant]
     Dosage: UNK
     Route: 048
     Dates: start: 20101119, end: 20110223
  4. GASTER D [Concomitant]
     Indication: PROPHYLAXIS
     Dosage: UNK
     Route: 048
     Dates: start: 20101111, end: 20110223
  5. FRUCTOSE (+) GLYCERIN [Concomitant]
     Dosage: UNK
     Route: 041
     Dates: start: 20101122, end: 20101202
  6. RINDERON (BETAMETHASONE) [Concomitant]
     Dosage: UNK
     Route: 041
     Dates: start: 20101122, end: 20101202
  7. GASTER [Concomitant]
     Dosage: UNK
     Route: 041
     Dates: start: 20101122, end: 20101202

REACTIONS (7)
  - Intracranial tumour haemorrhage [Recovering/Resolving]
  - Headache [Not Recovered/Not Resolved]
  - Hepatic function abnormal [Recovering/Resolving]
  - Constipation [Not Recovered/Not Resolved]
  - Pneumonia [Recovered/Resolved]
  - Pneumonia [Recovered/Resolved]
  - Hyponatraemia [Recovering/Resolving]
